FAERS Safety Report 13595046 (Version 1)
Quarter: 2017Q2

REPORT INFORMATION
  Report Type: Spontaneous
  Country: FR (occurrence: FR)
  Receive Date: 20170531
  Receipt Date: 20170531
  Transmission Date: 20170830
  Serious: Yes (Hospitalization)
  Sender: FDA-Public Use
  Company Number: PHHY2017FR075529

PATIENT
  Age: 43 Year
  Sex: Female

DRUGS (6)
  1. BILASKA [Concomitant]
     Active Substance: BILASTINE
     Indication: PRODUCT USED FOR UNKNOWN INDICATION
     Dosage: UNK
     Route: 065
     Dates: start: 201611, end: 201611
  2. SPASFON (PHLOROGLUCINOL, TRIMETHYLPHLOROGLUCINOL) [Concomitant]
     Active Substance: PHLOROGLUCINOL\1,3,5-TRIMETHOXYBENZENE
     Indication: PRODUCT USED FOR UNKNOWN INDICATION
     Dosage: UNK
     Route: 065
     Dates: start: 201610, end: 201611
  3. MEDROL [Suspect]
     Active Substance: METHYLPREDNISOLONE
     Indication: ODYNOPHAGIA
     Dosage: UNK
     Route: 048
     Dates: start: 201610, end: 201610
  4. VOLTARENE [Suspect]
     Active Substance: DICLOFENAC SODIUM
     Indication: PRODUCT USED FOR UNKNOWN INDICATION
     Dosage: 100 MG, UNK
     Route: 048
     Dates: start: 20161202
  5. MONAZOL [Concomitant]
     Active Substance: SERTACONAZOLE NITRATE
     Indication: VULVOVAGINAL PRURITUS
     Dosage: 300 MG, QD
     Route: 067
     Dates: start: 20161201, end: 20161201
  6. BETADINE [Concomitant]
     Active Substance: POVIDONE-IODINE
     Indication: PRODUCT USED FOR UNKNOWN INDICATION
     Dosage: UNK
     Route: 065
     Dates: start: 201610, end: 201610

REACTIONS (1)
  - Drug reaction with eosinophilia and systemic symptoms [Recovered/Resolved]

NARRATIVE: CASE EVENT DATE: 20161208
